FAERS Safety Report 12785932 (Version 1)
Quarter: 2016Q3

REPORT INFORMATION
  Report Type: Spontaneous
  Country: US (occurrence: US)
  Receive Date: 20160927
  Receipt Date: 20160927
  Transmission Date: 20161109
  Serious: No
  Sender: FDA-Public Use
  Company Number: US-BAYER-2016-184583

PATIENT
  Age: 64 Year
  Sex: Female

DRUGS (3)
  1. ALEVE [Suspect]
     Active Substance: NAPROXEN SODIUM
     Indication: SCIATICA
     Dosage: 2 DF, UNK
     Route: 048
     Dates: end: 2016
  2. CARVEDILOL. [Concomitant]
     Active Substance: CARVEDILOL
  3. INSULIN [Concomitant]
     Active Substance: INSULIN NOS

REACTIONS (3)
  - Gastric disorder [Unknown]
  - Constipation [Unknown]
  - Drug effect delayed [None]
